FAERS Safety Report 9879423 (Version 1)
Quarter: 2014Q1

REPORT INFORMATION
  Report Type: Spontaneous
  Country: FR (occurrence: FR)
  Receive Date: 20140206
  Receipt Date: 20140206
  Transmission Date: 20141002
  Serious: Yes (Other)
  Sender: FDA-Public Use
  Company Number: FR-PFIZER INC-2014031570

PATIENT
  Age: 74 Year
  Sex: Female

DRUGS (2)
  1. TAHOR [Suspect]
     Dosage: 20 MG, 1X/DAY
     Route: 048
     Dates: start: 2006, end: 201209
  2. ATORVASTATIN MYLAN [Suspect]
     Dosage: 20 MG, 1X/DAY
     Route: 048
     Dates: start: 201209, end: 20130613

REACTIONS (7)
  - Product substitution issue [Recovered/Resolved]
  - Myalgia [Recovered/Resolved]
  - Arthralgia [Recovered/Resolved]
  - Abdominal pain [Recovered/Resolved]
  - Nausea [Recovered/Resolved]
  - Diarrhoea [Recovered/Resolved]
  - Alopecia [Unknown]
